FAERS Safety Report 25319435 (Version 2)
Quarter: 2025Q2

REPORT INFORMATION
  Report Type: Spontaneous
  Country: US (occurrence: US)
  Receive Date: 20250515
  Receipt Date: 20250516
  Transmission Date: 20250716
  Serious: Yes (Other)
  Sender: APOTEX
  Company Number: US-APOTEX-2025AP007311

PATIENT

DRUGS (2)
  1. SIROLIMUS [Suspect]
     Active Substance: SIROLIMUS
     Indication: Immunosuppressant drug therapy
     Route: 065
  2. TACROLIMUS [Suspect]
     Active Substance: TACROLIMUS
     Indication: Immunosuppressant drug therapy
     Route: 065

REACTIONS (3)
  - Epstein-Barr viraemia [Unknown]
  - Post transplant lymphoproliferative disorder [Unknown]
  - Smooth muscle cell neoplasm [Unknown]

NARRATIVE: CASE EVENT DATE: 20200901
